FAERS Safety Report 4454447-8 (Version None)
Quarter: 2004Q3

REPORT INFORMATION
  Report Type: 
  Country: None (occurrence: None)
  Receive Date: 20040917
  Receipt Date: 20040917
  Transmission Date: 20050211
  Serious: No
  Sender: FDA-Public Use
  Company Number: None

PATIENT
  Sex: Female

DRUGS (2)
  1. DEFEROXAMINE  2GM    HOSPIRA [Suspect]
     Indication: BLOOD IRON INCREASED
     Dosage: 2GM  5/7 DAYS WK  SUBCUTANEOUS
     Route: 058
     Dates: start: 20040601, end: 20040722
  2. DEFEROXAMINE  2GM    HOSPIRA [Suspect]
     Indication: SOCIAL PHOBIA
     Dosage: 2GM  5/7 DAYS WK  SUBCUTANEOUS
     Route: 058
     Dates: start: 20040601, end: 20040722

REACTIONS (4)
  - CONTUSION [None]
  - INJECTION SITE PAIN [None]
  - PHARMACEUTICAL PRODUCT COMPLAINT [None]
  - SWELLING [None]
